FAERS Safety Report 8756904 (Version 1)
Quarter: 2012Q4

REPORT INFORMATION
  Report Type: 
  Country: US (occurrence: US)
  Receive Date: 20120828
  Receipt Date: 20120828
  Transmission Date: 20130627
  Serious: Yes (Hospitalization, Other)
  Sender: FDA-Public Use
  Company Number: US-BAYER-2012-086675

PATIENT
  Age: 18 Year
  Sex: Female
  Weight: 123 kg

DRUGS (17)
  1. YAZ [Suspect]
     Dosage: UNK
  2. GIANVI [Suspect]
  3. YASMIN [Suspect]
  4. METFORMIN [Concomitant]
     Dosage: 500 mg, BID
     Route: 048
     Dates: start: 20111212
  5. PROMETHAZINE [Concomitant]
     Dosage: 25 mg / 0.5ml
     Route: 061
     Dates: start: 20120125
  6. VITAMIN D [Concomitant]
     Dosage: 400 units
     Route: 048
     Dates: start: 20120125
  7. OMEGA 3 [FISH OIL] [Concomitant]
     Dosage: 1000 mg, BID
     Route: 048
     Dates: start: 20120125
  8. CALCIUM ASCORBATE [Concomitant]
     Dosage: 500 mg, UNK
     Route: 048
     Dates: start: 20120125
  9. ZOFRAN [Concomitant]
     Dosage: 4 mg, UNK
     Route: 042
     Dates: start: 20120125
  10. TORADOL [Concomitant]
     Dosage: 30 mg, UNK
     Route: 042
     Dates: start: 20120125
  11. DILAUDID [Concomitant]
     Dosage: 0.5 mg, UNK
     Route: 042
     Dates: start: 20120125
  12. ULTRAM [Concomitant]
     Dosage: 50 mg, UNK
     Route: 048
     Dates: start: 20120127
  13. BENADRYL [Concomitant]
     Dosage: 25 mg, UNK
     Route: 042
     Dates: start: 20120209
  14. TYLENOL [Concomitant]
     Dosage: 975 mg, ONCE
     Route: 048
     Dates: start: 20120209
  15. NORCO [Concomitant]
     Indication: PAIN
     Dosage: 7.5 /325 1-2 tab (interpreted as tablet) every 4-6 hours as needed
     Route: 048
     Dates: start: 20120212
  16. REGLAN [Concomitant]
     Dosage: One time dose preoperative
     Route: 042
     Dates: start: 20120301
  17. DECADRON [Concomitant]
     Dosage: 8 mg, UNK
     Route: 042
     Dates: start: 20120301

REACTIONS (3)
  - Cholecystitis chronic [None]
  - Deep vein thrombosis [None]
  - Pulmonary embolism [None]
